FAERS Safety Report 9922326 (Version 3)
Quarter: 2014Q1

REPORT INFORMATION
  Report Type: Report from Study
  Country: US (occurrence: US)
  Receive Date: 20140225
  Receipt Date: 20140314
  Transmission Date: 20141002
  Serious: Yes (Death, Life-Threatening, Hospitalization)
  Sender: FDA-Public Use
  Company Number: US-ACTELION-A-US2014-95388

PATIENT
  Age: 70 Year
  Sex: Female

DRUGS (1)
  1. VENTAVIS [Suspect]
     Indication: PULMONARY ARTERIAL HYPERTENSION
     Dosage: 5 MCG, 6 X DAY
     Route: 055
     Dates: start: 20120510, end: 20140218

REACTIONS (5)
  - Respiratory failure [Fatal]
  - Lung disorder [Fatal]
  - Pulmonary embolism [Unknown]
  - Thrombosis [Unknown]
  - Dyspnoea [Unknown]
